FAERS Safety Report 7957852-8 (Version None)
Quarter: 2011Q4

REPORT INFORMATION
  Report Type: 
  Country: None (occurrence: None)
  Receive Date: 20111205
  Receipt Date: 20111125
  Transmission Date: 20120403
  Serious: Yes (Other)
  Sender: FDA-Public Use
  Company Number: DE-MPIJNJ-2011-00315

PATIENT

DRUGS (11)
  1. REVLIMID [Suspect]
     Indication: MULTIPLE MYELOMA
     Dosage: 15 MG, UNK
     Route: 048
     Dates: start: 20100201, end: 20100701
  2. CONCOR [Concomitant]
     Indication: HYPERTENSION
     Dosage: 5 MG, UNK
  3. VELCADE [Suspect]
     Indication: MULTIPLE MYELOMA
     Dosage: 1.7 MG, UNK
     Route: 065
     Dates: start: 20100201, end: 20100701
  4. BACTRIM [Concomitant]
     Indication: PROPHYLAXIS
     Dosage: 2 DF, UNK
     Route: 065
  5. PREDNISONE TAB [Concomitant]
     Indication: MULTIPLE MYELOMA
  6. DEXAMETHASONE [Suspect]
     Indication: MULTIPLE MYELOMA
     Dosage: 20 MG, UNK
     Route: 065
     Dates: start: 20100201, end: 20100701
  7. ACYCLOVIR [Concomitant]
     Indication: PROPHYLAXIS
     Dosage: 1600 MG, UNK
  8. ASPIRIN [Concomitant]
     Indication: THROMBOSIS PROPHYLAXIS
     Dosage: 100 MG, UNK
  9. TEMAZEPAM [Concomitant]
     Indication: INSOMNIA
     Dosage: 20 MG, UNK
  10. CYCLOPHOSPHAMIDE [Concomitant]
     Indication: MULTIPLE MYELOMA
  11. MELPHALAN HYDROCHLORIDE [Suspect]
     Indication: MULTIPLE MYELOMA
     Dosage: 9 MG, UNK
     Route: 065
     Dates: start: 20100201, end: 20100701

REACTIONS (7)
  - DRUG INEFFECTIVE [None]
  - PANCYTOPENIA [None]
  - MULTIPLE MYELOMA [None]
  - QUALITY OF LIFE DECREASED [None]
  - FATIGUE [None]
  - NEOPLASM PROGRESSION [None]
  - NEUTROPENIA [None]
